FAERS Safety Report 21247841 (Version 3)
Quarter: 2022Q3

REPORT INFORMATION
  Report Type: Spontaneous
  Country: CA (occurrence: CA)
  Receive Date: 20220824
  Receipt Date: 20220927
  Transmission Date: 20221026
  Serious: Yes (Other)
  Sender: FDA-Public Use
  Company Number: CA-PFIZER INC-202101870832

PATIENT
  Age: 76 Year
  Sex: Male

DRUGS (8)
  1. BRAFTOVI [Suspect]
     Active Substance: ENCORAFENIB
     Indication: Metastatic malignant melanoma
     Dosage: 450 MG, DAILY
     Route: 048
  2. BRAFTOVI [Suspect]
     Active Substance: ENCORAFENIB
     Dosage: 2 DF, DAILY (150 MG, DAILY)
  3. BRAFTOVI [Suspect]
     Active Substance: ENCORAFENIB
     Dosage: 150 MG (75 MG X 2(TWO PILLS) IN AM)
  4. BRAFTOVI [Suspect]
     Active Substance: ENCORAFENIB
     Dosage: 2 BRAFTOVI (DOSE REDUCED)
     Dates: start: 20220809
  5. MEKTOVI [Suspect]
     Active Substance: BINIMETINIB
     Indication: Metastatic malignant melanoma
     Dosage: UNK
     Dates: start: 20220114
  6. MEKTOVI [Suspect]
     Active Substance: BINIMETINIB
     Dosage: 45 MG, 2X/DAY
  7. MEKTOVI [Suspect]
     Active Substance: BINIMETINIB
     Dosage: 15 MG, 2X/DAY (15 MG (1 PILL) IN AM, AND ONE PILL(15MG) IN PM)
  8. MEKTOVI [Suspect]
     Active Substance: BINIMETINIB
     Dosage: 1 MEKTOVI IN AM AND 1 MEKTOVI IN PM(DOSE REDUCED)
     Dates: start: 20220809

REACTIONS (6)
  - Musculoskeletal disorder [Recovered/Resolved]
  - Off label use [Unknown]
  - COVID-19 [Unknown]
  - Insomnia [Unknown]
  - Limb discomfort [Recovered/Resolved]
  - Liver disorder [Not Recovered/Not Resolved]

NARRATIVE: CASE EVENT DATE: 20220101
